FAERS Safety Report 10143789 (Version 1)
Quarter: 2014Q2

REPORT INFORMATION
  Report Type: Spontaneous
  Country: US (occurrence: US)
  Receive Date: 20140430
  Receipt Date: 20140430
  Transmission Date: 20141212
  Serious: Yes (Hospitalization)
  Sender: FDA-Public Use
  Company Number: US-GLAXOSMITHKLINE-A1070632A

PATIENT
  Age: 76 Year
  Sex: Female

DRUGS (17)
  1. ADVAIR [Suspect]
     Indication: EMPHYSEMA
     Dosage: 1PUFF TWICE PER DAY
     Route: 055
  2. CALTRATE [Concomitant]
  3. CENTRUM SILVER [Concomitant]
  4. BUSPIRONE [Concomitant]
  5. GABAPENTIN [Concomitant]
  6. AMBIEN [Concomitant]
  7. BABY ASPIRIN [Concomitant]
  8. NORCO [Concomitant]
  9. SIMVASTATIN [Concomitant]
  10. ESTRADIOL [Concomitant]
  11. TUMS [Concomitant]
  12. FOLIC ACID [Concomitant]
  13. VITAMIN B-12 [Concomitant]
  14. ROPINIROLE [Concomitant]
  15. DOXYCYCLINE [Concomitant]
  16. LEVAQUIN [Concomitant]
  17. FLAGYL [Concomitant]

REACTIONS (7)
  - Lung neoplasm malignant [Unknown]
  - Infection [Unknown]
  - Diverticulitis [Unknown]
  - Neuralgia [Not Recovered/Not Resolved]
  - Respiratory tract congestion [Unknown]
  - Tremor [Unknown]
  - Surgery [Unknown]
